FAERS Safety Report 9191563 (Version 1)
Quarter: 2013Q1

REPORT INFORMATION
  Report Type: Spontaneous
  Country: US (occurrence: US)
  Receive Date: 20130326
  Receipt Date: 20130326
  Transmission Date: 20140127
  Serious: No
  Sender: FDA-Public Use
  Company Number: US-B.I. PHARMACEUTICALS,INC./RIDGEFIELD-2013-BI-07375BP

PATIENT
  Age: 69 Year
  Sex: Female
  Weight: 63 kg

DRUGS (17)
  1. SPIRIVA [Suspect]
     Indication: CHRONIC OBSTRUCTIVE PULMONARY DISEASE
     Dosage: 18 MCG
     Route: 055
     Dates: start: 2005
  2. CLOTRIMAZOLE [Concomitant]
     Route: 048
  3. LISINOPRIL [Concomitant]
     Dosage: 10 MG
     Route: 048
  4. NITROGLYCERINE [Concomitant]
  5. PROAIR [Concomitant]
     Route: 055
  6. FUROSEMIDE [Concomitant]
     Dosage: 40 MG
     Route: 048
  7. HYDROCODONE [Concomitant]
     Route: 048
  8. ANTI GAS PILL [Concomitant]
     Route: 048
  9. ALBUTEROL [Concomitant]
     Route: 055
  10. VITAMIN D [Concomitant]
     Route: 048
  11. PREDNISONE [Concomitant]
     Dosage: 10 MG
     Route: 048
  12. DULERA [Concomitant]
     Route: 055
  13. QVAR [Concomitant]
     Route: 055
  14. CITALOPRAM [Concomitant]
     Dosage: 20 MG
     Route: 048
  15. DALIRESP [Concomitant]
     Dosage: 500 MG
     Route: 048
  16. FAMOTIDINE [Concomitant]
     Dosage: 40 MG
     Route: 048
  17. PREMARIN [Concomitant]
     Dosage: 0.3 MG
     Route: 048

REACTIONS (6)
  - Dyspnoea [Recovered/Resolved]
  - Nausea [Not Recovered/Not Resolved]
  - Diarrhoea [Not Recovered/Not Resolved]
  - Discomfort [Not Recovered/Not Resolved]
  - Decreased appetite [Not Recovered/Not Resolved]
  - Product quality issue [Recovered/Resolved]
